FAERS Safety Report 5479837-6 (Version None)
Quarter: 2007Q4

REPORT INFORMATION
  Report Type: 
  Country: None (occurrence: None)
  Receive Date: 20071008
  Receipt Date: 20071001
  Transmission Date: 20080405
  Serious: Yes (Other)
  Sender: FDA-Public Use
  Company Number: FR-GENENTECH-248823

PATIENT

DRUGS (1)
  1. RITUXAN [Suspect]
     Indication: SJOGREN'S SYNDROME
     Dosage: 375 MG/M2, UNK

REACTIONS (1)
  - SERUM SICKNESS [None]
